FAERS Safety Report 10069183 (Version 2)
Quarter: 2014Q2

REPORT INFORMATION
  Report Type: Spontaneous
  Country: US (occurrence: US)
  Receive Date: 20140409
  Receipt Date: 20140409
  Transmission Date: 20141212
  Serious: No
  Sender: FDA-Public Use
  Company Number: US-ASTELLAS-2013US006445

PATIENT
  Age: 63 Year
  Sex: Female

DRUGS (1)
  1. PROTOPIC [Suspect]
     Indication: ALOPECIA
     Dosage: UNK
     Route: 061
     Dates: start: 20130501, end: 201306

REACTIONS (2)
  - Off label use [Unknown]
  - Alopecia [Recovering/Resolving]
